FAERS Safety Report 5309490-3 (Version None)
Quarter: 2007Q2

REPORT INFORMATION
  Report Type: 
  Country: None (occurrence: None)
  Receive Date: 20070424
  Receipt Date: 20070412
  Transmission Date: 20071010
  Serious: Yes (Life-Threatening, Hospitalization)
  Sender: FDA-Public Use
  Company Number: FABR-11961

PATIENT
  Age: 65 Year
  Sex: Male

DRUGS (10)
  1. FABRAZYME [Suspect]
     Indication: FABRY'S DISEASE
     Dosage: 85 MG Q2WKS IV
     Route: 042
     Dates: start: 20070125, end: 20070416
  2. FABRAZYME [Suspect]
     Indication: FABRY'S DISEASE
     Dates: start: 20040101
  3. ALLOPURINOL [Concomitant]
  4. COUMADIN [Concomitant]
  5. GEMFIBROZIL [Concomitant]
  6. PLAVIX [Concomitant]
  7. INSULIN [Concomitant]
  8. NORVASC [Concomitant]
  9. NITROGLYCERIN [Concomitant]
  10. FOLIC ACID [Concomitant]

REACTIONS (4)
  - HYPOTENSION [None]
  - LOSS OF CONSCIOUSNESS [None]
  - METASTATIC NEOPLASM [None]
  - NEUROPATHY [None]
